FAERS Safety Report 6412605-7 (Version None)
Quarter: 2009Q4

REPORT INFORMATION
  Report Type: 
  Country: None (occurrence: None)
  Receive Date: 20091023
  Receipt Date: 20091013
  Transmission Date: 20100525
  Serious: Yes (Hospitalization)
  Sender: FDA-Public Use
  Company Number: PHHY2009CA16878

PATIENT
  Sex: Male

DRUGS (5)
  1. EXJADE [Suspect]
     Indication: MYELODYSPLASTIC SYNDROME
     Dosage: 1500 MG, QD
     Route: 048
     Dates: start: 20090115, end: 20090419
  2. EXJADE [Suspect]
     Indication: IRON OVERLOAD
  3. HYDROXYUREA [Concomitant]
     Dosage: 500 MG, QD
     Route: 048
  4. ASPIRIN [Concomitant]
     Dosage: 1 DF, QD
     Route: 048
  5. EPREX [Concomitant]
     Dosage: 60000 IU , ONE INJECTION WEEKLY

REACTIONS (3)
  - ABDOMINAL DISCOMFORT [None]
  - ABDOMINAL PAIN [None]
  - CARDIAC OPERATION [None]
